FAERS Safety Report 4898542-8 (Version None)
Quarter: 2006Q1

REPORT INFORMATION
  Report Type: 
  Country: None (occurrence: None)
  Receive Date: 20060130
  Receipt Date: 20060119
  Transmission Date: 20060701
  Serious: Yes (Hospitalization, Disabling, Other)
  Sender: FDA-Public Use
  Company Number: 2005012957

PATIENT
  Age: 49 Year
  Sex: Male
  Weight: 85.2762 kg

DRUGS (8)
  1. NEURONTIN [Suspect]
     Indication: BIPOLAR DISORDER
     Dosage: 600 MG (300 MG, 2 IN 1 D)
     Dates: start: 20000101, end: 20020101
  2. KLONOPIN [Concomitant]
  3. TRILEPTAL [Concomitant]
  4. PROZAC [Concomitant]
  5. REVIA [Concomitant]
  6. AMBIEN [Concomitant]
  7. VICODIN [Concomitant]
  8. ULTRAM [Concomitant]

REACTIONS (15)
  - BIPOLAR DISORDER [None]
  - DRUG DEPENDENCE [None]
  - GUN SHOT WOUND [None]
  - INTENTIONAL DRUG MISUSE [None]
  - MOVEMENT DISORDER [None]
  - NICOTINE DEPENDENCE [None]
  - OVERDOSE [None]
  - PAIN [None]
  - PALPITATIONS [None]
  - POLYTRAUMATISM [None]
  - SCAR [None]
  - SKIN INJURY [None]
  - SUICIDE ATTEMPT [None]
  - SWELLING [None]
  - TENDERNESS [None]
